FAERS Safety Report 10067677 (Version 1)
Quarter: 2014Q2

REPORT INFORMATION
  Report Type: Spontaneous
  Country: US (occurrence: US)
  Receive Date: 20140409
  Receipt Date: 20140409
  Transmission Date: 20141212
  Serious: No
  Sender: FDA-Public Use
  Company Number: US-MYLANLABS-2013S1025793

PATIENT
  Age: 31 Year
  Sex: Female

DRUGS (1)
  1. BUSPIRONE HYDROCHLORIDE TABLETS, USP [Suspect]
     Indication: ANXIETY
     Route: 048
     Dates: start: 20131107, end: 20131110

REACTIONS (2)
  - Dizziness [Recovering/Resolving]
  - Insomnia [Recovering/Resolving]
